FAERS Safety Report 22219755 (Version 1)
Quarter: 2023Q2

REPORT INFORMATION
  Report Type: Spontaneous
  Country: US (occurrence: US)
  Receive Date: 20230417
  Receipt Date: 20230417
  Transmission Date: 20230722
  Serious: No
  Sender: FDA-Public Use
  Company Number: US-BIOGEN-2023BI01198603

PATIENT

DRUGS (1)
  1. ADUHELM [Suspect]
     Active Substance: ADUCANUMAB-AVWA
     Indication: Product used for unknown indication
     Route: 050
     Dates: end: 20230228

REACTIONS (3)
  - Nausea [Unknown]
  - Headache [Unknown]
  - Amyloid related imaging abnormality-oedema/effusion [Unknown]
